FAERS Safety Report 22218844 (Version 8)
Quarter: 2024Q2

REPORT INFORMATION
  Report Type: Spontaneous
  Country: CA (occurrence: CA)
  Receive Date: 20230417
  Receipt Date: 20240402
  Transmission Date: 20240715
  Serious: Yes (Other)
  Sender: FDA-Public Use
  Company Number: CA-PFIZER INC-PV202300013433

PATIENT
  Age: 41 Year
  Sex: Female

DRUGS (12)
  1. IBRANCE [Suspect]
     Active Substance: PALBOCICLIB
     Dosage: UNK
     Dates: start: 20230213
  2. IBRANCE [Suspect]
     Active Substance: PALBOCICLIB
     Dosage: UNK
     Dates: start: 20230607
  3. IBRANCE [Suspect]
     Active Substance: PALBOCICLIB
     Dosage: 100 MG, CYCLIC, FOR 21 DAYS ON, 7 DAYS OFF
     Route: 048
  4. IBRANCE [Suspect]
     Active Substance: PALBOCICLIB
     Dosage: UNK, CYCLIC (ALTERNATE IBRANCE 100 MG AND 75 MG DAILY DOSE FOR 21 DAYS TOTAL, THEN 7 DAYS OFF)
     Dates: start: 20240103
  5. IBRANCE [Suspect]
     Active Substance: PALBOCICLIB
     Dosage: 75 MG, CYCLIC (1 TAB DAILY FOR 21D, ALTERNATE 100 MG AND 75 MG DAILY DOSE X 21D TOTAL, THEN 7D OFF)
     Route: 048
  6. IBRANCE [Suspect]
     Active Substance: PALBOCICLIB
     Dosage: 100 MG, CYCLIC (1 TAB DAILY FOR 21 DAYS, TAKE ALTERNATING WITH THE 75 MG DOSAGE Q48H)
     Route: 048
  7. IBRANCE [Suspect]
     Active Substance: PALBOCICLIB
     Dosage: 75 MG TABLET
     Route: 048
     Dates: start: 20240212, end: 20240306
  8. IBRANCE [Suspect]
     Active Substance: PALBOCICLIB
     Dosage: 75 MG, DAILY(TAKE 1 TABLET(75 MG TOTAL) BY MOUTH DAILY FOR 21 DAYS)
     Route: 048
     Dates: start: 20240306
  9. IBRANCE [Suspect]
     Active Substance: PALBOCICLIB
     Dosage: 100 MG, ALTERNATE 100MG DAILY X 2 DAYS THEN 75MG X 1 DAY, X 21 DAYS TOTAL. THEN TAKE 7 DAYS OFF
     Route: 048
     Dates: start: 20240306
  10. IBRANCE [Suspect]
     Active Substance: PALBOCICLIB
     Dosage: 100 MG, DAILY(TAKE 1 CAPSULE (100 MG TOTAL) BY MOUTH AS DIRECTED FOR 21 DAYS)
     Route: 048
     Dates: start: 20240306
  11. IBRANCE [Suspect]
     Active Substance: PALBOCICLIB
     Dosage: 100 MG, CYCLIC(TAKE 1 TABLET BY MOUTH DAILY, FOR 21 DAYS THEN 7 DAYS OFF.)
     Route: 048
     Dates: start: 20240327
  12. LETROZOLE [Concomitant]
     Active Substance: LETROZOLE
     Dosage: UNK
     Dates: start: 202207

REACTIONS (3)
  - Dental operation [Unknown]
  - Off label use [Unknown]
  - Full blood count decreased [Unknown]

NARRATIVE: CASE EVENT DATE: 20230501
